FAERS Safety Report 6259362-5 (Version None)
Quarter: 2009Q3

REPORT INFORMATION
  Report Type: 
  Country: None (occurrence: None)
  Receive Date: 20090706
  Receipt Date: 20090630
  Transmission Date: 20100115
  Serious: Yes (Death, Hospitalization)
  Sender: FDA-Public Use
  Company Number: 2009US000007

PATIENT
  Age: 80 Year
  Sex: Male

DRUGS (2)
  1. ENTEREG [Suspect]
     Indication: POSTOPERATIVE ILEUS
     Dosage: 12 MG; PO
     Route: 048
     Dates: start: 20081208, end: 20081211
  2. COUMADIN [Concomitant]

REACTIONS (2)
  - POST PROCEDURAL COMPLICATION [None]
  - SMALL INTESTINAL PERFORATION [None]
